FAERS Safety Report 7394784-0 (Version None)
Quarter: 2011Q2

REPORT INFORMATION
  Report Type: 
  Country: None (occurrence: None)
  Receive Date: 20110405
  Receipt Date: 20110328
  Transmission Date: 20111010
  Serious: Yes (Other)
  Sender: FDA-Public Use
  Company Number: US-TEVA-273536USA

PATIENT

DRUGS (1)
  1. TORASEMIDE 5 MG, 10 MG, 20 MG + 100 MG TABLETS [Suspect]
     Dates: start: 20110221

REACTIONS (1)
  - DEAFNESS [None]
